FAERS Safety Report 8808871 (Version 4)
Quarter: 2012Q4

REPORT INFORMATION
  Report Type: 
  Country: US (occurrence: US)
  Receive Date: 20120926
  Receipt Date: 20121226
  Transmission Date: 20130627
  Serious: Yes (Other)
  Sender: FDA-Public Use
  Company Number: PHEH2012US018409

PATIENT
  Age: 60 Year
  Sex: Female

DRUGS (3)
  1. ZOMETA [Suspect]
     Indication: BREAST CANCER
     Dosage: UNK UKN, UNK
     Route: 042
     Dates: start: 2004
  2. ZOMETA [Suspect]
     Dosage: 04 mg, UNK
     Dates: start: 20120904
  3. ACETYLSALICYLIC ACID (ASA) [Concomitant]

REACTIONS (17)
  - Ototoxicity [Unknown]
  - Deafness [Unknown]
  - Tinnitus [Not Recovered/Not Resolved]
  - Vertigo [Unknown]
  - Meniere^s disease [Unknown]
  - Product contamination [Unknown]
  - Wrong technique in drug usage process [Unknown]
  - Overdose [Unknown]
  - Fall [Unknown]
  - Hypoacusis [Recovered/Resolved]
  - Dehydration [Unknown]
  - Influenza like illness [Unknown]
  - Fatigue [Unknown]
  - Dizziness [Unknown]
  - Diarrhoea [Unknown]
  - Vomiting [Unknown]
  - Nausea [Unknown]
